FAERS Safety Report 8244653-9 (Version None)
Quarter: 2012Q1

REPORT INFORMATION
  Report Type: 
  Country: None (occurrence: None)
  Receive Date: 20120329
  Receipt Date: 20111205
  Transmission Date: 20120608
  Serious: No
  Sender: FDA-Public Use
  Company Number: US-MYLANLABS-2011S1025140

PATIENT
  Age: 63 Year
  Sex: Male
  Weight: 106.6 kg

DRUGS (2)
  1. DILTIAZEM HCL [Concomitant]
     Indication: BLOOD PRESSURE INCREASED
  2. FENTANYL-100 [Suspect]
     Indication: ARTHRALGIA
     Dosage: PRESCRIBED TO CHANGE Q. 72 HOURS.
     Route: 062
     Dates: start: 20111130, end: 20111130

REACTIONS (4)
  - NAUSEA [None]
  - VOMITING [None]
  - IRRITABILITY [None]
  - HYPERHIDROSIS [None]
